FAERS Safety Report 6654084-0 (Version None)
Quarter: 2010Q1

REPORT INFORMATION
  Report Type: 
  Country: None (occurrence: None)
  Receive Date: 20100326
  Receipt Date: 20100317
  Transmission Date: 20100710
  Serious: Yes (Other)
  Sender: FDA-Public Use
  Company Number: PHHY2010NZ17125

PATIENT

DRUGS (1)
  1. OCTREOTIDE ACETATE [Suspect]
     Indication: PITUITARY TUMOUR BENIGN
     Dosage: UNK
     Route: 058
     Dates: end: 19991101

REACTIONS (2)
  - CYTOREDUCTIVE SURGERY [None]
  - VISUAL FIELD DEFECT [None]
